FAERS Safety Report 12531218 (Version 1)
Quarter: 2016Q3

REPORT INFORMATION
  Report Type: Spontaneous
  Country: US (occurrence: US)
  Receive Date: 20160706
  Receipt Date: 20160706
  Transmission Date: 20161109
  Serious: Yes (Hospitalization, Other)
  Sender: FDA-Public Use
  Company Number: US-PFIZER INC-2016325496

PATIENT
  Age: 54 Year
  Sex: Female
  Weight: 81.63 kg

DRUGS (2)
  1. LYRICA [Suspect]
     Active Substance: PREGABALIN
     Dosage: 200 MG, UNK
  2. INSULIN [Suspect]
     Active Substance: INSULIN NOS
     Indication: DIABETES MELLITUS
     Dosage: UNK

REACTIONS (4)
  - Hypoglycaemia [Unknown]
  - Coma [Unknown]
  - Intentional product use issue [Unknown]
  - Respiratory arrest [Unknown]
